FAERS Safety Report 9105404 (Version 1)
Quarter: 2013Q1

REPORT INFORMATION
  Report Type: Spontaneous
  Country: US (occurrence: US)
  Receive Date: 20130220
  Receipt Date: 20130220
  Transmission Date: 20140127
  Serious: Yes (Hospitalization, Other)
  Sender: FDA-Public Use
  Company Number: US-ABBOTT-13P-163-1049436-00

PATIENT
  Age: 77 Year
  Sex: Male
  Weight: 101.4 kg

DRUGS (18)
  1. DEPAKOTE [Suspect]
     Dates: start: 20110916, end: 20111229
  2. DEPAKOTE [Suspect]
     Dates: start: 20111230, end: 20120320
  3. SOLANEZUMAB [Suspect]
     Indication: DEMENTIA ALZHEIMER^S TYPE
     Dates: start: 20110803, end: 20120312
  4. NAMENDA [Concomitant]
     Indication: PRODUCT USED FOR UNKNOWN INDICATION
  5. METOPROLOL [Concomitant]
     Indication: PRODUCT USED FOR UNKNOWN INDICATION
  6. DIOVAN [Concomitant]
     Indication: PRODUCT USED FOR UNKNOWN INDICATION
  7. VITAMIN B12 [Concomitant]
     Indication: PRODUCT USED FOR UNKNOWN INDICATION
  8. ASPIRIN [Concomitant]
     Indication: PRODUCT USED FOR UNKNOWN INDICATION
  9. PROBIOTICS [Concomitant]
     Indication: PRODUCT USED FOR UNKNOWN INDICATION
  10. TYLENOL [Concomitant]
     Indication: PRODUCT USED FOR UNKNOWN INDICATION
  11. ARICEPT [Concomitant]
     Indication: DEMENTIA ALZHEIMER^S TYPE
     Dates: end: 20110916
  12. ARICEPT [Concomitant]
     Dates: start: 20110917, end: 20111228
  13. ARICEPT [Concomitant]
     Dates: start: 20111230
  14. RISPERIDONE [Concomitant]
     Indication: PRODUCT USED FOR UNKNOWN INDICATION
     Dates: end: 20111127
  15. RISPERIDONE [Concomitant]
     Dates: start: 20111128, end: 20111229
  16. RISPERIDONE [Concomitant]
     Dates: end: 20120404
  17. RISPERIDONE [Concomitant]
     Dates: start: 20120405
  18. NYSTATIN\TRIAMCINOLONE [Concomitant]
     Indication: PRODUCT USED FOR UNKNOWN INDICATION
     Dates: start: 20111221

REACTIONS (7)
  - Blood creatine phosphokinase increased [Unknown]
  - Red blood cell count decreased [Unknown]
  - Haemoglobin decreased [Unknown]
  - Hyperammonaemia [Recovered/Resolved]
  - Encephalopathy [Recovered/Resolved]
  - Aspartate aminotransferase increased [Unknown]
  - Infection [Unknown]
